FAERS Safety Report 8087128-2 (Version None)
Quarter: 2012Q1

REPORT INFORMATION
  Report Type: 
  Country: None (occurrence: None)
  Receive Date: 20120128
  Receipt Date: 20110609
  Transmission Date: 20120608
  Serious: No
  Sender: FDA-Public Use
  Company Number: US-ABBOTT-11P-163-0725440-00

PATIENT
  Sex: Male

DRUGS (8)
  1. SINGULAIR [Concomitant]
     Indication: ASTHMA
  2. TRAMADOL HCL [Concomitant]
     Indication: PAIN
     Dosage: DAILY PRN
  3. KLONOPIN [Concomitant]
     Indication: ANXIETY
  4. ADVAIR DISKUS 100/50 [Concomitant]
     Indication: ASTHMA
  5. MERCAPTOPURINE [Concomitant]
     Indication: CROHN'S DISEASE
  6. HUMIRA [Suspect]
     Indication: CROHN'S DISEASE
     Dosage: DAY ONE
     Route: 058
     Dates: start: 20110510
  7. NEXIUM [Concomitant]
     Indication: GASTROOESOPHAGEAL REFLUX DISEASE
  8. VERAPAMIL [Concomitant]
     Indication: HYPERTENSION
     Dosage: 240MG DAILY

REACTIONS (3)
  - SLUGGISHNESS [None]
  - ABDOMINAL PAIN UPPER [None]
  - FATIGUE [None]
